FAERS Safety Report 4549174-2 (Version None)
Quarter: 2005Q1

REPORT INFORMATION
  Report Type: 
  Country: None (occurrence: None)
  Receive Date: 20050111
  Receipt Date: 20041030
  Transmission Date: 20050727
  Serious: Yes (Death, Hospitalization)
  Sender: FDA-Public Use
  Company Number: PHNR2004AU01573

PATIENT
  Age: 32 Year
  Sex: Male

DRUGS (6)
  1. LORAZEPAM [Concomitant]
  2. CLOZARIL [Suspect]
     Indication: SCHIZOAFFECTIVE DISORDER
     Dosage: 35 - 300 DAILY
     Dates: start: 19951117, end: 20041001
  3. CLOZARIL [Suspect]
     Dosage: 550 MG DAILY
     Dates: start: 20041001
  4. VALPROATE SODIUM [Concomitant]
  5. OLANZAPINE [Concomitant]
     Dosage: 10 MG DAILY
  6. VALIUM [Concomitant]

REACTIONS (7)
  - ARRHYTHMIA [None]
  - CARDIOMEGALY [None]
  - DEPRESSION [None]
  - MENTAL DISORDER [None]
  - SLEEP APNOEA SYNDROME [None]
  - SUDDEN DEATH [None]
  - TOXICOLOGIC TEST ABNORMAL [None]
